FAERS Safety Report 7369006-7 (Version None)
Quarter: 2011Q1

REPORT INFORMATION
  Report Type: 
  Country: None (occurrence: None)
  Receive Date: 20110308
  Receipt Date: 20110302
  Transmission Date: 20110831
  Serious: Yes (Other)
  Sender: FDA-Public Use
  Company Number: A0916472A

PATIENT
  Age: 45 Year
  Sex: Male

DRUGS (1)
  1. CAFFEINE (FORMULATION UNKNOWN) (CAFFEINE) [Suspect]
     Dosage: ORAL
     Route: 048

REACTIONS (1)
  - DRUG DEPENDENCE [None]
